FAERS Safety Report 10094261 (Version 4)
Quarter: 2016Q3

REPORT INFORMATION
  Report Type: Report from Study
  Country: BR (occurrence: BR)
  Receive Date: 20140422
  Receipt Date: 20160830
  Transmission Date: 20161108
  Serious: Yes (Other)
  Sender: FDA-Public Use
  Company Number: BR-ROCHE-1347162

PATIENT
  Sex: Female
  Weight: 70 kg

DRUGS (3)
  1. XOLAIR [Suspect]
     Active Substance: OMALIZUMAB
     Indication: ASTHMA
     Dosage: 1 DF, QMO
     Route: 058
  2. CAPTOPRIL. [Concomitant]
     Active Substance: CAPTOPRIL
     Indication: HYPERTENSION
     Dosage: UNK (STARTED 5 YEARS AGO)
     Route: 065
  3. XOLAIR [Suspect]
     Active Substance: OMALIZUMAB
     Dosage: 150 MG, QMO
     Route: 058

REACTIONS (6)
  - Breath sounds abnormal [Unknown]
  - Blood pressure increased [Recovered/Resolved]
  - Weight decreased [Unknown]
  - Diabetes mellitus [Not Recovered/Not Resolved]
  - Visual impairment [Unknown]
  - Asthmatic crisis [Not Recovered/Not Resolved]
